FAERS Safety Report 7039747-X (Version None)
Quarter: 2010Q4

REPORT INFORMATION
  Report Type: 
  Country: None (occurrence: None)
  Receive Date: 20101012
  Receipt Date: 20100520
  Transmission Date: 20110411
  Serious: No
  Sender: FDA-Public Use
  Company Number: US-MYLANLABS-2010S1009040

PATIENT
  Age: 63 Year
  Sex: Female
  Weight: 81.65 kg

DRUGS (5)
  1. BISOPROLOL FUMARATE AND HYDROCHLOROTHIAZIDE [Suspect]
     Indication: BLOOD PRESSURE INCREASED
     Route: 048
     Dates: start: 20100507, end: 20100514
  2. BISOPROLOL FUMARATE AND HYDROCHLOROTHIAZIDE [Suspect]
     Route: 048
     Dates: start: 20100507, end: 20100514
  3. BISOPROLOL FUMARATE AND HYDROCHLOROTHIAZIDE [Suspect]
     Route: 048
     Dates: start: 20100515
  4. BISOPROLOL FUMARATE AND HYDROCHLOROTHIAZIDE [Suspect]
     Route: 048
     Dates: start: 20100515
  5. IBUPROFEN [Concomitant]
     Route: 048

REACTIONS (4)
  - ARTHRALGIA [None]
  - DIZZINESS [None]
  - FATIGUE [None]
  - INAPPROPRIATE SCHEDULE OF DRUG ADMINISTRATION [None]
